FAERS Safety Report 10151299 (Version 1)
Quarter: 2014Q2

REPORT INFORMATION
  Report Type: Spontaneous
  Country: US (occurrence: US)
  Receive Date: 20140502
  Receipt Date: 20140502
  Transmission Date: 20141212
  Serious: No
  Sender: FDA-Public Use
  Company Number: US-ASTRAZENECA-2013SE57302

PATIENT
  Age: 66 Year
  Sex: Male

DRUGS (17)
  1. PRILOSEC OTC [Suspect]
     Indication: GASTROOESOPHAGEAL REFLUX DISEASE
     Route: 048
     Dates: start: 20130514, end: 20130516
  2. PROGRAF [Concomitant]
     Indication: RENAL TRANSPLANT
     Dosage: 2 MG, 2 /DAY
     Route: 048
  3. RAPAMUNE [Concomitant]
     Indication: IMMUNOSUPPRESSANT DRUG THERAPY
     Dosage: UNK DOSE, 1 /DAY
     Route: 048
  4. ALLOPRANOL [Concomitant]
     Indication: GOUT
     Dosage: 100 MG, 1 /DAY
     Route: 048
  5. COLCRYS [Concomitant]
     Indication: GOUT
     Dosage: 0.6 MG, 1 /DAY
     Route: 048
  6. CLOPIDOGREL [Concomitant]
     Indication: PROPHYLAXIS
     Dosage: 75 MG, 1 /DAY
     Route: 048
  7. CLONIDINE [Concomitant]
     Indication: ANTICOAGULANT THERAPY
     Dosage: 75 MG, 1 /DAY
     Route: 048
  8. SPIRONOLACTONE [Concomitant]
     Dosage: 25 MG, UNK
  9. METOPROLOL [Concomitant]
     Indication: HYPERTENSION
     Dosage: 100 MG, 1 /DAY
     Route: 048
  10. FENOFIBRATE [Concomitant]
     Dosage: 160 MG, 1 /DAY
     Route: 048
  11. LOSARTAN [Concomitant]
     Dosage: 25 MG, 1 /DAY
     Route: 048
  12. TORSEMIDE [Concomitant]
     Dosage: 100 MG, 1 /DAY
     Route: 048
  13. SIMVASTATIN [Concomitant]
     Dosage: 20 MG, 1 /DAY
     Route: 048
  14. ASPIRIN [Concomitant]
     Dosage: UNKNOWN
  15. FOLBIC [Concomitant]
     Dosage: UNKNOWN
  16. VITAMIN D NOS [Concomitant]
     Dosage: 1000 UNIT, UNK FREQ
     Route: 048
  17. MAG OXIDE [Concomitant]
     Dosage: UNKNOWN

REACTIONS (3)
  - Hypersensitivity [Recovered/Resolved]
  - Pruritus generalised [Recovered/Resolved]
  - Eye swelling [Recovered/Resolved]
